FAERS Safety Report 16659017 (Version 1)
Quarter: 2019Q3

REPORT INFORMATION
  Report Type: Spontaneous
  Country: CN (occurrence: CN)
  Receive Date: 20190801
  Receipt Date: 20190801
  Transmission Date: 20191004
  Serious: Yes (Hospitalization)
  Sender: FDA-Public Use
  Company Number: CN-BAXTER-2019BAX014646

PATIENT
  Age: 65 Year
  Sex: Female
  Weight: 59 kg

DRUGS (6)
  1. 0.9% SODIUM CHLORIDE INJECTION [Suspect]
     Active Substance: SODIUM CHLORIDE
     Dosage: DOCETAXEL 40MG + SODIUM CHLORIDE 100 ML Q21D, CYCLICAL
     Route: 041
     Dates: start: 20190706, end: 20190706
  2. ENDOXAN [Suspect]
     Active Substance: CYCLOPHOSPHAMIDE
     Indication: BREAST CANCER FEMALE
     Dosage: CYCLOPHOSPHAMIDE +0.9% SODIUM CHLORIDE 100ML Q21DAY, CYCLICAL
     Route: 041
     Dates: start: 20190706, end: 20190706
  3. 0.9% SODIUM CHLORIDE INJECTION [Suspect]
     Active Substance: SODIUM CHLORIDE
     Dosage: DOCETAXEL 80MG + SODIUM CHLORIDE 250 ML Q21D, CYCLICAL
     Route: 041
     Dates: start: 20190706, end: 20190706
  4. DUOPAFEI [Suspect]
     Active Substance: DOCETAXEL
     Indication: BREAST CANCER FEMALE
     Dosage: DOCETAXEL +0.9% SODIUM CHLORIDE 100ML Q21D, CYCLICAL
     Route: 041
     Dates: start: 20190706, end: 20190706
  5. DUOPAFEI [Suspect]
     Active Substance: DOCETAXEL
     Dosage: DOCETAXEL +0.9% SODIUM CHLORIDE 250 ML Q21D, CYCLLICAL
     Route: 041
     Dates: start: 20190706, end: 20190706
  6. 0.9% SODIUM CHLORIDE INJECTION [Suspect]
     Active Substance: SODIUM CHLORIDE
     Indication: MEDICATION DILUTION
     Dosage: CYCLOPHOSPHAMIDE 900MG + SODIUM CHLORIDE 100 ML Q21D, CYCLICAL
     Route: 041
     Dates: start: 20190706, end: 20190706

REACTIONS (5)
  - Pain [Recovered/Resolved]
  - Carotid arteriosclerosis [Unknown]
  - Pain in extremity [Recovered/Resolved]
  - Bone marrow failure [Recovered/Resolved]
  - Headache [Recovered/Resolved]

NARRATIVE: CASE EVENT DATE: 201907
